FAERS Safety Report 8240522-9 (Version None)
Quarter: 2012Q1

REPORT INFORMATION
  Report Type: 
  Country: None (occurrence: None)
  Receive Date: 20120328
  Receipt Date: 20120314
  Transmission Date: 20120608
  Serious: Yes (Other)
  Sender: FDA-Public Use
  Company Number: US-ROCHE-1050917

PATIENT

DRUGS (2)
  1. ISOTRETINOIN [Suspect]
     Indication: NEOPLASM
     Route: 048
  2. ENTINOSTAT [Suspect]
     Indication: NEOPLASM
     Route: 048

REACTIONS (13)
  - HYPOALBUMINAEMIA [None]
  - NAUSEA [None]
  - LEUKOPENIA [None]
  - BLOOD ALKALINE PHOSPHATASE INCREASED [None]
  - VOMITING [None]
  - THROMBOCYTOPENIA [None]
  - ANAEMIA [None]
  - HYPONATRAEMIA [None]
  - NEUTROPENIA [None]
  - HYPOPHOSPHATAEMIA [None]
  - FATIGUE [None]
  - DECREASED APPETITE [None]
  - HYPERGLYCAEMIA [None]
